FAERS Safety Report 5310997-3 (Version None)
Quarter: 2007Q2

REPORT INFORMATION
  Report Type: 
  Country: None (occurrence: None)
  Receive Date: 20070423
  Receipt Date: 20070418
  Transmission Date: 20071010
  Serious: Yes (Life-Threatening)
  Sender: FDA-Public Use
  Company Number: 2007S1000088

PATIENT
  Age: 5 Day
  Sex: Male

DRUGS (9)
  1. INOMAX [Suspect]
     Indication: PULMONARY HYPERTENSION
     Dosage: 15 PPM; INH_GAS ; CONT
     Dates: start: 20061222, end: 20061226
  2. AMPICILLIN [Concomitant]
  3. DIAZEPAM [Concomitant]
  4. TOBRAMYCIN [Concomitant]
  5. NYSTATIN [Concomitant]
  6. MEROPENEM (MEROPENEM) [Concomitant]
  7. PHENOBARBITAL TAB [Concomitant]
  8. INDOMETHACIN [Concomitant]
  9. IBUPROFEN [Concomitant]

REACTIONS (4)
  - BLOOD PRESSURE INCREASED [None]
  - DILATATION ATRIAL [None]
  - NEONATAL DISORDER [None]
  - PATENT DUCTUS ARTERIOSUS [None]
